FAERS Safety Report 9731567 (Version 1)
Quarter: 2013Q4

REPORT INFORMATION
  Report Type: Spontaneous
  Country: US (occurrence: None)
  Receive Date: 20131204
  Receipt Date: 20131204
  Transmission Date: 20140711
  Serious: Yes (Life-Threatening, Hospitalization)
  Sender: FDA-Public Use
  Company Number: None

PATIENT
  Age: 28 Year
  Sex: Female
  Weight: 84.82 kg

DRUGS (1)
  1. GILDESS [Suspect]
     Indication: MENSTRUAL DISORDER
     Dosage: 1 TB EVERY DAY; ONCE DAILY
     Route: 048
     Dates: start: 20090104, end: 20131126

REACTIONS (1)
  - Pulmonary embolism [None]
